FAERS Safety Report 8243619-2 (Version None)
Quarter: 2012Q1

REPORT INFORMATION
  Report Type: 
  Country: None (occurrence: None)
  Receive Date: 20120329
  Receipt Date: 20120319
  Transmission Date: 20120608
  Serious: Yes (Death, Congenital Anomaly)
  Sender: FDA-Public Use
  Company Number: US-JNJFOC-20120313845

PATIENT

DRUGS (4)
  1. MULTI-VITAMINS [Suspect]
     Indication: FOETAL EXPOSURE DURING PREGNANCY
     Route: 015
  2. TYLENOL W/ CODEINE NO. 3 [Suspect]
     Indication: FOETAL EXPOSURE DURING PREGNANCY
     Dosage: 6-8 TABLETS PER DAY FOR 10-14 DAYS
     Route: 015
  3. ACETAMINOPHEN [Suspect]
     Indication: FOETAL EXPOSURE DURING PREGNANCY
     Dosage: 12 TABLETS FOR 10-14 DAYS
     Route: 015
  4. ACETAMINOPHEN [Suspect]
     Route: 015

REACTIONS (2)
  - PERIVENTRICULAR LEUKOMALACIA [None]
  - INTRAVENTRICULAR HAEMORRHAGE [None]
